FAERS Safety Report 5567265-4 (Version None)
Quarter: 2007Q4

REPORT INFORMATION
  Report Type: 
  Country: None (occurrence: None)
  Receive Date: 20071219
  Receipt Date: 20071210
  Transmission Date: 20080405
  Serious: Yes (Other)
  Sender: FDA-Public Use
  Company Number: US-RANBAXY-2007US-08268

PATIENT

DRUGS (1)
  1. ISOTRETINOIN [Suspect]
     Indication: DRUG USE FOR UNKNOWN INDICATION
     Dosage: 60MG(2 CAPS IN AM, 1CAP AT PM)
     Route: 048
     Dates: start: 20070511, end: 20070606

REACTIONS (1)
  - PREGNANCY [None]
